FAERS Safety Report 24116239 (Version 1)
Quarter: 2024Q3

REPORT INFORMATION
  Report Type: Spontaneous
  Country: US (occurrence: US)
  Receive Date: 20240722
  Receipt Date: 20240722
  Transmission Date: 20241016
  Serious: No
  Sender: CHATTEM
  Company Number: US-OPELLA-2024OHG024374

PATIENT
  Sex: Female

DRUGS (1)
  1. SELSUN BLUE MOISTURIZING [Suspect]
     Active Substance: SELENIUM SULFIDE
     Indication: Product used for unknown indication
     Route: 061

REACTIONS (2)
  - Seborrhoea [Unknown]
  - Drug ineffective [Unknown]
